FAERS Safety Report 7388209-9 (Version None)
Quarter: 2011Q1

REPORT INFORMATION
  Report Type: 
  Country: None (occurrence: None)
  Receive Date: 20110324
  Receipt Date: 20110310
  Transmission Date: 20110831
  Serious: Yes (Hospitalization)
  Sender: FDA-Public Use
  Company Number: 018334

PATIENT
  Sex: Female
  Weight: 48 kg

DRUGS (5)
  1. PREDNISONE [Concomitant]
  2. HUMIRA [Concomitant]
  3. CIMZIA [Suspect]
     Indication: RHEUMATOID ARTHRITIS
     Dosage: SUBCUTANEOUS
     Route: 058
     Dates: start: 20100904
  4. METHOTREXATE [Concomitant]
  5. PLAQUENIL [Concomitant]

REACTIONS (2)
  - ANGIOEDEMA [None]
  - INJECTION SITE RASH [None]
